FAERS Safety Report 6037281-7 (Version None)
Quarter: 2009Q1

REPORT INFORMATION
  Report Type: 
  Country: None (occurrence: None)
  Receive Date: 20090114
  Receipt Date: 20090110
  Transmission Date: 20090719
  Serious: Yes (Life-Threatening, Hospitalization)
  Sender: FDA-Public Use
  Company Number: B0550594A

PATIENT
  Age: 61 Year
  Sex: Male

DRUGS (8)
  1. ABACAVIR SULFATE/LAMIVUDINE [Suspect]
     Indication: HIV INFECTION
     Dosage: 600MG PER DAY
     Route: 048
     Dates: start: 20080518, end: 20081113
  2. SELOKEN ZOC [Concomitant]
     Indication: HYPERTENSION
     Dosage: 1TAB PER DAY
     Route: 048
     Dates: start: 20010101
  3. LAMIVUDINE [Concomitant]
     Indication: HIV INFECTION
     Dosage: 300MG PER DAY
     Route: 048
     Dates: start: 20060322, end: 20081113
  4. KALETRA [Concomitant]
     Indication: HIV INFECTION
     Dosage: 4TAB PER DAY
     Route: 048
     Dates: start: 20060322
  5. PRIMASPAN [Concomitant]
     Dosage: 1TAB PER DAY
     Route: 048
     Dates: start: 20020726
  6. CIALIS [Concomitant]
     Dosage: 20MG AS REQUIRED
     Route: 048
     Dates: start: 20070101
  7. TRUVADA [Concomitant]
     Indication: DRUG USE FOR UNKNOWN INDICATION
     Route: 065
     Dates: start: 20081113
  8. COMBIVIR [Concomitant]
     Indication: HIV INFECTION
     Route: 065

REACTIONS (2)
  - ACUTE MYOCARDIAL INFARCTION [None]
  - DYSPNOEA [None]
